FAERS Safety Report 18316181 (Version 1)
Quarter: 2020Q3

REPORT INFORMATION
  Report Type: Spontaneous
  Country: US (occurrence: US)
  Receive Date: 20200927
  Receipt Date: 20200927
  Transmission Date: 20201103
  Serious: No
  Sender: FDA-Public Use
  Company Number: US-ELI_LILLY_AND_COMPANY-US202009009754

PATIENT
  Age: 68 Year
  Sex: Female

DRUGS (1)
  1. HUMAN INSULIN [Suspect]
     Active Substance: INSULIN HUMAN
     Indication: DIABETES MELLITUS
     Dosage: 34 U, PRN
     Route: 065
     Dates: start: 2018

REACTIONS (5)
  - Sleep disorder due to a general medical condition [Unknown]
  - Hyperhidrosis [Unknown]
  - Tremor [Unknown]
  - Blood glucose decreased [Unknown]
  - Heart rate increased [Unknown]

NARRATIVE: CASE EVENT DATE: 20200919
